FAERS Safety Report 14171582 (Version 1)
Quarter: 2017Q4

REPORT INFORMATION
  Report Type: Spontaneous
  Country: US (occurrence: US)
  Receive Date: 20171108
  Receipt Date: 20171108
  Transmission Date: 20180321
  Serious: No
  Sender: FDA-Public Use
  Company Number: US-009507513-1710USA014495

PATIENT
  Sex: Male

DRUGS (11)
  1. GLIMEPIRIDE. [Concomitant]
     Active Substance: GLIMEPIRIDE
  2. GABAPENTIN. [Concomitant]
     Active Substance: GABAPENTIN
  3. CARVEDILOL. [Concomitant]
     Active Substance: CARVEDILOL
  4. TAMSULOSIN HYDROCHLORIDE. [Concomitant]
     Active Substance: TAMSULOSIN HYDROCHLORIDE
  5. NIFEDIPINE. [Concomitant]
     Active Substance: NIFEDIPINE
  6. ATORVASTATIN [Concomitant]
     Active Substance: ATORVASTATIN
  7. LANTUS [Concomitant]
     Active Substance: INSULIN GLARGINE
  8. BENAZEPRIL HYDROCHLORIDE. [Concomitant]
     Active Substance: BENAZEPRIL HYDROCHLORIDE
  9. HUMALOG [Concomitant]
     Active Substance: INSULIN LISPRO
  10. TRAMADOL HYDROCHLORIDE. [Concomitant]
     Active Substance: TRAMADOL HYDROCHLORIDE
  11. ZEPATIER [Suspect]
     Active Substance: ELBASVIR\GRAZOPREVIR
     Indication: HEPATITIS C
     Dosage: 1 TABLET DAILY
     Route: 048
     Dates: start: 20171009

REACTIONS (2)
  - Pruritus [Not Recovered/Not Resolved]
  - Dizziness [Not Recovered/Not Resolved]

NARRATIVE: CASE EVENT DATE: 2017
